FAERS Safety Report 5709643-6 (Version None)
Quarter: 2008Q2

REPORT INFORMATION
  Report Type: 
  Country: None (occurrence: None)
  Receive Date: 20080418
  Receipt Date: 20080416
  Transmission Date: 20081010
  Serious: Yes (Other)
  Sender: FDA-Public Use
  Company Number: B0516835A

PATIENT
  Age: 11 Year
  Sex: Male

DRUGS (5)
  1. SALBUTAMOL SULPHATE [Suspect]
     Indication: ASTHMA
     Dosage: 200MCG VARIABLE DOSE
     Route: 055
  2. SALBUTAMOL SULPHATE [Suspect]
     Route: 055
  3. SERETIDE [Suspect]
     Indication: ASTHMA
     Route: 055
  4. SLO-PHYLLIN [Concomitant]
     Route: 065
  5. PREDNISOLONE [Concomitant]
     Dosage: 5MG EIGHT TIMES PER DAY
     Route: 065

REACTIONS (1)
  - ASTHMA [None]
